FAERS Safety Report 22858197 (Version 3)
Quarter: 2025Q2

REPORT INFORMATION
  Report Type: Report from Study
  Country: EG (occurrence: EG)
  Receive Date: 20230824
  Receipt Date: 20250622
  Transmission Date: 20250717
  Serious: No
  Sender: SANDOZ
  Company Number: EG-SANDOZ-SDZ2023EG017745

PATIENT
  Age: 11 Year
  Sex: Male
  Weight: 26 kg

DRUGS (1)
  1. OMNITROPE [Suspect]
     Active Substance: SOMATROPIN
     Indication: Growth hormone deficiency
     Dosage: 1 MG, QD
     Route: 058
     Dates: start: 20230205, end: 20230820

REACTIONS (6)
  - Anaemia [Recovering/Resolving]
  - Product dose omission issue [Unknown]
  - Multiple use of single-use product [Unknown]
  - Expired device used [Unknown]
  - Product prescribing issue [Unknown]
  - Wrong device used [Unknown]

NARRATIVE: CASE EVENT DATE: 20230205
